FAERS Safety Report 5738677-0 (Version None)
Quarter: 2008Q2

REPORT INFORMATION
  Report Type: 
  Country: None (occurrence: None)
  Receive Date: 20080515
  Receipt Date: 20080415
  Transmission Date: 20081010
  Serious: Yes (Other)
  Sender: FDA-Public Use
  Company Number: JP-NOVOPROD-274478

PATIENT
  Age: 50 Year
  Sex: Male
  Weight: 56.8 kg

DRUGS (1)
  1. PENFILL 30R CHU [Suspect]
     Indication: TYPE 1 DIABETES MELLITUS
     Dosage: 1200 IU, UNK
     Route: 058

REACTIONS (3)
  - HYPOGLYCAEMIA [None]
  - INTENTIONAL OVERDOSE [None]
  - SUICIDE ATTEMPT [None]
